FAERS Safety Report 11496439 (Version 1)
Quarter: 2015Q3

REPORT INFORMATION
  Report Type: Spontaneous
  Country: AU (occurrence: AU)
  Receive Date: 20150904
  Receipt Date: 20150904
  Transmission Date: 20151125
  Serious: Yes (Hospitalization)
  Sender: FDA-Public Use
  Company Number: AU-IPCA LABORATORIES LIMITED-IPC201508-000572

PATIENT
  Age: 74 Year
  Sex: Male

DRUGS (2)
  1. WARFARIN [Suspect]
     Active Substance: WARFARIN
     Indication: ATRIAL FIBRILLATION
  2. SOTALOL. [Concomitant]
     Active Substance: SOTALOL
     Indication: ATRIAL FIBRILLATION

REACTIONS (8)
  - Cerebral haemorrhage [Unknown]
  - International normalised ratio increased [Unknown]
  - Fall [Unknown]
  - Contusion [Unknown]
  - Amnesia [Unknown]
  - Subarachnoid haemorrhage [Unknown]
  - Craniocerebral injury [Recovering/Resolving]
  - Subdural haemorrhage [Unknown]
